FAERS Safety Report 4329919-7 (Version None)
Quarter: 2004Q1

REPORT INFORMATION
  Report Type: 
  Country: None (occurrence: None)
  Receive Date: 20040329
  Receipt Date: 20031210
  Transmission Date: 20041129
  Serious: No
  Sender: FDA-Public Use
  Company Number: 03P-163-0236444-00

PATIENT
  Age: 48 Year
  Sex: Female
  Weight: 131.5431 kg

DRUGS (9)
  1. HUMIRA [Suspect]
     Indication: RHEUMATOID ARTHRITIS
     Dosage: 40 MG, 1 IN 2 WK, SUBCUTANEOUS
     Route: 058
     Dates: start: 20030701
  2. DICLOFENAC SODIUM [Concomitant]
  3. AZATHIOPRINE [Concomitant]
  4. PREDNISONE [Concomitant]
  5. LEVOTHYROXINE SODIUM [Concomitant]
  6. DIPHENHYDRAMINE HCL [Concomitant]
  7. CALCIUM [Concomitant]
  8. MULTIVITAMIN [Concomitant]
  9. PANTOPRAZOLE [Concomitant]

REACTIONS (6)
  - BACK PAIN [None]
  - CHEST PAIN [None]
  - INJECTION SITE BURNING [None]
  - INJECTION SITE HAEMORRHAGE [None]
  - ULCER [None]
  - WEIGHT INCREASED [None]
